FAERS Safety Report 15179328 (Version 1)
Quarter: 2018Q3

REPORT INFORMATION
  Report Type: Spontaneous
  Country: US (occurrence: US)
  Receive Date: 20180723
  Receipt Date: 20180723
  Transmission Date: 20181010
  Serious: Yes (Other)
  Sender: FDA-Public Use
  Company Number: US-FDC LIMITED-2018RIS00340

PATIENT
  Age: 90 Year
  Sex: Female

DRUGS (3)
  1. UNSPECIFIED EYE DROPS [Concomitant]
     Active Substance: UNSPECIFIED INGREDIENT
  2. UNSPECIFIED EYE DROPS [Concomitant]
     Active Substance: UNSPECIFIED INGREDIENT
  3. TIMOLOL MALEATE. [Suspect]
     Active Substance: TIMOLOL MALEATE
     Dosage: UNK, 2X/DAY
     Route: 047

REACTIONS (5)
  - Incorrect dose administered [Unknown]
  - Dry eye [Unknown]
  - Glaucoma [Unknown]
  - Exposure via skin contact [Unknown]
  - Product storage error [Unknown]
